FAERS Safety Report 6729801-1 (Version None)
Quarter: 2010Q2

REPORT INFORMATION
  Report Type: 
  Country: None (occurrence: None)
  Receive Date: 20100518
  Receipt Date: 20100510
  Transmission Date: 20101027
  Serious: Yes (Other)
  Sender: FDA-Public Use
  Company Number: US-PFIZER INC-2009207053

PATIENT
  Sex: Female
  Weight: 49.887 kg

DRUGS (2)
  1. LIPITOR [Suspect]
     Indication: BLOOD CHOLESTEROL INCREASED
     Dosage: 10 MG, 1X/DAY
     Route: 048
     Dates: start: 20010101, end: 20060101
  2. TYLENOL PM [Concomitant]
     Dosage: UNK

REACTIONS (5)
  - ASTHENIA [None]
  - LIVER INJURY [None]
  - MUSCLE ATROPHY [None]
  - MYALGIA [None]
  - RENAL DISORDER [None]
